FAERS Safety Report 8030223-4 (Version None)
Quarter: 2011Q4

REPORT INFORMATION
  Report Type: 
  Country: None (occurrence: None)
  Receive Date: 20111130
  Receipt Date: 20110803
  Transmission Date: 20120403
  Serious: Yes (Other)
  Sender: FDA-Public Use
  Company Number: US201007007856

PATIENT
  Sex: Female
  Weight: 81.6 kg

DRUGS (1)
  1. BYETTA [Suspect]
     Dosage: 5 UG, BID ; 10 UG
     Dates: start: 20071101, end: 20090728

REACTIONS (3)
  - RENAL FAILURE ACUTE [None]
  - PANCREATITIS [None]
  - RENAL FAILURE [None]
